FAERS Safety Report 8549816-0 (Version None)
Quarter: 2012Q3

REPORT INFORMATION
  Report Type: 
  Country: None (occurrence: None)
  Receive Date: 20120730
  Receipt Date: 20120725
  Transmission Date: 20120928
  Serious: Yes (Life-Threatening, Hospitalization)
  Sender: FDA-Public Use
  Company Number: DE-ASTRAZENECA-2012SE53134

PATIENT
  Age: 28044 Day
  Sex: Male
  Weight: 74 kg

DRUGS (6)
  1. DIOVAN [Concomitant]
     Indication: HYPERTENSION
     Route: 048
  2. BRILINTA [Suspect]
     Indication: CORONARY ANGIOPLASTY
     Route: 048
     Dates: start: 20111209, end: 20120321
  3. BRILINTA [Suspect]
     Indication: CORONARY ARTERY DISEASE
     Route: 048
     Dates: start: 20111209, end: 20120321
  4. BRILINTA [Suspect]
     Indication: ARTERIAL STENT INSERTION
     Route: 048
     Dates: start: 20111209, end: 20120321
  5. ASPIRIN [Concomitant]
     Indication: CORONARY ARTERY DISEASE
     Route: 048
  6. NORVASC [Concomitant]
     Indication: HYPERTENSION
     Route: 048

REACTIONS (2)
  - CARDIOGENIC SHOCK [None]
  - PERICARDIAL EFFUSION [None]
